FAERS Safety Report 5499655-2 (Version None)
Quarter: 2007Q4

REPORT INFORMATION
  Report Type: 
  Country: None (occurrence: None)
  Receive Date: 20071026
  Receipt Date: 20071017
  Transmission Date: 20080405
  Serious: Yes (Hospitalization, Disabling, Other)
  Sender: FDA-Public Use
  Company Number: US-PFIZER INC-2007036442

PATIENT
  Sex: Male
  Weight: 83.9 kg

DRUGS (2)
  1. CELEBREX [Suspect]
     Indication: ARTHRITIS
     Route: 048
     Dates: start: 20030801, end: 20040301
  2. BEXTRA [Suspect]
     Indication: ARTHRITIS
     Dates: start: 20030801

REACTIONS (2)
  - BRAIN DAMAGE [None]
  - CEREBROVASCULAR ACCIDENT [None]
